FAERS Safety Report 8304505-2 (Version None)
Quarter: 2012Q2

REPORT INFORMATION
  Report Type: 
  Country: None (occurrence: None)
  Receive Date: 20120423
  Receipt Date: 20120412
  Transmission Date: 20120825
  Serious: Yes (Hospitalization)
  Sender: FDA-Public Use
  Company Number: US-GLAXOSMITHKLINE-A0794183A

PATIENT
  Age: 50 Year
  Sex: Male
  Weight: 89.1 kg

DRUGS (5)
  1. DIOVAN [Concomitant]
  2. AVANDIA [Suspect]
     Indication: DIABETES MELLITUS
     Dosage: 4MG PER DAY
     Route: 048
     Dates: start: 20050724, end: 20070101
  3. HYDROCHLOROTHIAZIDE [Concomitant]
  4. GLIPIZIDE [Concomitant]
  5. CLONIDINE [Concomitant]

REACTIONS (3)
  - CARDIAC FAILURE CONGESTIVE [None]
  - CHEST PAIN [None]
  - CATHETERISATION CARDIAC [None]
